FAERS Safety Report 12970875 (Version 1)
Quarter: 2016Q4

REPORT INFORMATION
  Report Type: Spontaneous
  Country: US (occurrence: US)
  Receive Date: 20161123
  Receipt Date: 20161123
  Transmission Date: 20170207
  Serious: No
  Sender: FDA-Public Use
  Company Number: US-TEVA-713236USA

PATIENT
  Sex: Male

DRUGS (3)
  1. VENTOLIN [Suspect]
     Active Substance: ALBUTEROL SULFATE
     Indication: ASTHMA
     Route: 055
  2. PROAIR HFA [Suspect]
     Active Substance: ALBUTEROL SULFATE
     Indication: ASTHMA
     Route: 055
  3. ATENOLOL. [Concomitant]
     Active Substance: ATENOLOL
     Indication: ASTHMA

REACTIONS (4)
  - Drug ineffective [Unknown]
  - Asthma [Not Recovered/Not Resolved]
  - Product tampering [Unknown]
  - Product physical issue [Unknown]

NARRATIVE: CASE EVENT DATE: 20161112
